FAERS Safety Report 8598452-9 (Version None)
Quarter: 2012Q3

REPORT INFORMATION
  Report Type: 
  Country: None (occurrence: None)
  Receive Date: 20120816
  Receipt Date: 20120816
  Transmission Date: 20120928
  Serious: Yes (Other)
  Sender: FDA-Public Use
  Company Number: PL-BAYER-2012-083686

PATIENT
  Age: 9 Year
  Sex: Female
  Weight: 33 kg

DRUGS (1)
  1. MAGNEVIST [Suspect]
     Indication: NUCLEAR MAGNETIC RESONANCE IMAGING BRAIN
     Dosage: UNK
     Route: 042
     Dates: start: 20120714, end: 20120714

REACTIONS (3)
  - VISUAL IMPAIRMENT [None]
  - HEADACHE [None]
  - HYPOACUSIS [None]
